FAERS Safety Report 7499661-2 (Version None)
Quarter: 2011Q2

REPORT INFORMATION
  Report Type: 
  Country: None (occurrence: None)
  Receive Date: 20110509
  Receipt Date: 20110427
  Transmission Date: 20111010
  Serious: Yes (Death, Life-Threatening)
  Sender: FDA-Public Use
  Company Number: THYM-1000921

PATIENT
  Age: 8 Month
  Sex: Male
  Weight: 8 kg

DRUGS (12)
  1. THYMOGLOBULIN [Suspect]
     Indication: BONE MARROW CONDITIONING REGIMEN
     Dosage: 20 MG, QD, INTRAVENOUS
     Route: 042
     Dates: start: 20090217, end: 20090218
  2. MEROPENEM [Concomitant]
  3. HYDROXYZINE HCL [Concomitant]
  4. FAMOTIDINE [Concomitant]
  5. FLUDARABINE PHOSPHATE [Concomitant]
  6. DALTEPARIN SODIUM [Concomitant]
  7. MICAFUNGIN SODIUM (MICAFUNGIN SODIUM) [Concomitant]
  8. METHYLPREDNISOLONE [Concomitant]
  9. CYCLOPHOSPHAMIDE [Concomitant]
  10. FUROSEMIDE [Concomitant]
  11. HYDROXYZINE HCL [Concomitant]
  12. CARBENIN (BETAMIPRON, PANIPENEM) [Concomitant]

REACTIONS (7)
  - PYREXIA [None]
  - INFUSION RELATED REACTION [None]
  - PULMONARY HAEMORRHAGE [None]
  - ANAPHYLACTIC REACTION [None]
  - CONDITION AGGRAVATED [None]
  - STAPHYLOCOCCAL INFECTION [None]
  - NAUSEA [None]
